FAERS Safety Report 18237782 (Version 2)
Quarter: 2020Q3

REPORT INFORMATION
  Report Type: Spontaneous
  Country: CA (occurrence: US)
  Receive Date: 20200907
  Receipt Date: 20200907
  Transmission Date: 20201103
  Serious: No
  Sender: FDA-Public Use
  Company Number: CA-SHIRE-CA202028305

PATIENT

DRUGS (2)
  1. FAMCICLOVIR. [Concomitant]
     Active Substance: FAMCICLOVIR
     Indication: PRODUCT USED FOR UNKNOWN INDICATION
  2. ADDERALL XR [Suspect]
     Active Substance: AMPHETAMINE ASPARTATE\AMPHETAMINE SULFATE\DEXTROAMPHETAMINE SACCHARATE\DEXTROAMPHETAMINE SULFATE
     Indication: ATTENTION DEFICIT HYPERACTIVITY DISORDER
     Dosage: 5 MILLIGRAM, 1X/DAY:QD
     Route: 048
     Dates: start: 20200825, end: 20200828

REACTIONS (2)
  - Vision blurred [Unknown]
  - Self esteem decreased [Unknown]

NARRATIVE: CASE EVENT DATE: 20200825
